FAERS Safety Report 10248446 (Version 1)
Quarter: 2014Q2

REPORT INFORMATION
  Report Type: Spontaneous
  Country: US (occurrence: US)
  Receive Date: 20140620
  Receipt Date: 20140620
  Transmission Date: 20141212
  Serious: No
  Sender: FDA-Public Use
  Company Number: US-BIOGENIDEC-2014BI057046

PATIENT
  Sex: Female
  Weight: 116 kg

DRUGS (8)
  1. TECFIDERA [Suspect]
     Indication: MULTIPLE SCLEROSIS
     Dates: start: 201401
  2. AVONEX [Concomitant]
     Indication: MULTIPLE SCLEROSIS
     Route: 030
     Dates: start: 20110621
  3. AVONEX [Concomitant]
     Indication: MULTIPLE SCLEROSIS
     Route: 030
     Dates: start: 20130717
  4. CLONAZEPAM [Concomitant]
     Route: 048
     Dates: start: 20131126
  5. GABAPENTIN [Concomitant]
     Route: 048
     Dates: start: 20131126
  6. GABAPENTIN [Concomitant]
     Route: 048
  7. HYDROCHLOROTHIAZIDE [Concomitant]
     Route: 048
     Dates: start: 20131126
  8. NUVIGIL [Concomitant]
     Route: 048
     Dates: start: 20131126

REACTIONS (4)
  - Depression [Not Recovered/Not Resolved]
  - Nausea [Unknown]
  - Flushing [Unknown]
  - Pruritus [Unknown]
